FAERS Safety Report 17455221 (Version 6)
Quarter: 2020Q1

REPORT INFORMATION
  Report Type: Spontaneous
  Country: US (occurrence: US)
  Receive Date: 20200225
  Receipt Date: 20200323
  Transmission Date: 20200409
  Serious: Yes (Hospitalization, Other)
  Sender: FDA-Public Use
  Company Number: US-UNITED THERAPEUTICS-UNT-2020-001455

PATIENT
  Age: 55 Year
  Sex: Male
  Weight: 106.58 kg

DRUGS (15)
  1. TYVASO [Suspect]
     Active Substance: TREPROSTINIL
     Dosage: 60-120 ?G, QID
  2. UPTRAVI [Suspect]
     Active Substance: SELEXIPAG
     Dosage: 1400 ?G, BID (MORNING)
     Route: 065
  3. UPTRAVI [Suspect]
     Active Substance: SELEXIPAG
     Dosage: UNK
     Route: 065
  4. GABAPENTIN. [Suspect]
     Active Substance: GABAPENTIN
     Indication: PRODUCT USED FOR UNKNOWN INDICATION
     Dosage: UNK
     Route: 065
  5. TYVASO [Suspect]
     Active Substance: TREPROSTINIL
     Dosage: 54 ?G, QID
     Dates: start: 20200203
  6. TYVASO [Suspect]
     Active Substance: TREPROSTINIL
     Indication: PULMONARY ARTERIAL HYPERTENSION
     Dosage: UNK
     Dates: start: 20140220
  7. TYVASO [Suspect]
     Active Substance: TREPROSTINIL
     Dosage: 18-54 ?G, QID
  8. UPTRAVI [Suspect]
     Active Substance: SELEXIPAG
     Indication: PRODUCT USED FOR UNKNOWN INDICATION
     Dosage: 200 ?G, BID
     Route: 065
  9. OPSUMIT [Concomitant]
     Active Substance: MACITENTAN
     Indication: PRODUCT USED FOR UNKNOWN INDICATION
     Dosage: UNK
     Route: 065
  10. UPTRAVI [Suspect]
     Active Substance: SELEXIPAG
     Dosage: 1600 ?G, UNK (EVENING)
     Route: 065
     Dates: start: 20200220
  11. UPTRAVI [Suspect]
     Active Substance: SELEXIPAG
     Dosage: 600 ?G, BID
     Route: 065
     Dates: start: 20200203
  12. UPTRAVI [Suspect]
     Active Substance: SELEXIPAG
     Dosage: 1200 ?G, BID
     Route: 065
  13. GABAPENTIN. [Suspect]
     Active Substance: GABAPENTIN
     Dosage: 100 MG, BID
     Route: 065
  14. ADCIRCA [Concomitant]
     Active Substance: TADALAFIL
     Indication: PULMONARY ARTERIAL HYPERTENSION
     Dosage: UNK
     Route: 065
  15. TYVASO [Suspect]
     Active Substance: TREPROSTINIL
     Dosage: 60 ?G, UNK
     Dates: start: 202001

REACTIONS (31)
  - Drug intolerance [Recovering/Resolving]
  - General physical health deterioration [Unknown]
  - Nausea [Not Recovered/Not Resolved]
  - Malaise [Unknown]
  - Dyspnoea [Not Recovered/Not Resolved]
  - Fluid retention [Unknown]
  - Pain in jaw [Not Recovered/Not Resolved]
  - Arthralgia [Recovering/Resolving]
  - Headache [Recovering/Resolving]
  - Product dose omission [Unknown]
  - Constipation [Unknown]
  - Fatigue [Unknown]
  - Bradyphrenia [Unknown]
  - Abdominal distension [Unknown]
  - Toothache [Unknown]
  - Back pain [Unknown]
  - Tremor [Unknown]
  - Anxiety [Unknown]
  - Asthenia [Unknown]
  - Dyspnoea exertional [Unknown]
  - Off label use [Unknown]
  - Stress [Unknown]
  - Pain in extremity [Recovering/Resolving]
  - Abdominal discomfort [Unknown]
  - Dizziness [Not Recovered/Not Resolved]
  - Muscle spasms [Recovering/Resolving]
  - Hyperhidrosis [Unknown]
  - Lethargy [Unknown]
  - Pulmonary arterial hypertension [Recovering/Resolving]
  - Depressed mood [Unknown]
  - Anger [Recovering/Resolving]

NARRATIVE: CASE EVENT DATE: 202001
